FAERS Safety Report 13095814 (Version 2)
Quarter: 2017Q1

REPORT INFORMATION
  Report Type: Spontaneous
  Country: US (occurrence: US)
  Receive Date: 20170109
  Receipt Date: 20170110
  Transmission Date: 20170428
  Serious: No
  Sender: FDA-Public Use
  Company Number: US-009507513-1612USA008945

PATIENT
  Sex: Female
  Weight: 48.98 kg

DRUGS (1)
  1. NEXPLANON [Suspect]
     Active Substance: ETONOGESTREL
     Indication: CONTRACEPTION
     Dosage: 3 YEAR IMPLANT, IN LEFT
     Route: 059
     Dates: start: 20160311

REACTIONS (4)
  - Respiration abnormal [Unknown]
  - Dizziness [Unknown]
  - Wheezing [Unknown]
  - Headache [Unknown]

NARRATIVE: CASE EVENT DATE: 2016
